FAERS Safety Report 7541672-2 (Version None)
Quarter: 2011Q2

REPORT INFORMATION
  Report Type: 
  Country: None (occurrence: None)
  Receive Date: 20110613
  Receipt Date: 20110602
  Transmission Date: 20111010
  Serious: Yes (Hospitalization)
  Sender: FDA-Public Use
  Company Number: JP-JNJFOC-20110602351

PATIENT
  Sex: Female
  Weight: 67 kg

DRUGS (17)
  1. DOXORUBICIN HCL [Suspect]
     Route: 042
     Dates: start: 20100113, end: 20100113
  2. MEROPENEM HYDRATE [Concomitant]
     Dosage: 75MCG/0.3ML
     Route: 042
     Dates: start: 20100305, end: 20100309
  3. ELASPOL [Concomitant]
     Dosage: 75MCG/0.3ML
     Route: 042
     Dates: start: 20100306, end: 20100310
  4. DOXORUBICIN HCL [Suspect]
     Route: 042
     Dates: start: 20100212, end: 20100212
  5. DOXORUBICIN HCL [Suspect]
     Route: 042
     Dates: start: 20090820, end: 20090820
  6. HEPARIN [Concomitant]
     Dosage: 75MCG/0.3ML
     Route: 061
     Dates: start: 20091022, end: 20091023
  7. SULFAMETHOXAZOLE [Concomitant]
     Dosage: 75MCG/0.3ML
     Route: 048
     Dates: start: 20100306, end: 20100311
  8. METHYLPREDNISOLONE SODIUM SUCCINATE [Concomitant]
     Dosage: 75MCG/0.3ML
     Route: 042
     Dates: start: 20100307, end: 20100311
  9. GLOVENIN-I [Concomitant]
     Dosage: 75MCG/0.3ML
     Route: 042
     Dates: start: 20100306
  10. DOXORUBICIN HCL [Suspect]
     Route: 042
     Dates: start: 20091217, end: 20091217
  11. DOXORUBICIN HCL [Suspect]
     Route: 042
     Dates: start: 20090925, end: 20090925
  12. CIPROFLOXACIN HYDROCHLORIDE [Concomitant]
     Dosage: 75MCG/0.3ML
     Route: 048
     Dates: start: 20100307, end: 20100309
  13. FLOMAX [Concomitant]
     Dosage: 75MCG/0.3ML
     Route: 048
     Dates: start: 20091106, end: 20091110
  14. DOXORUBICIN HCL [Suspect]
     Indication: OVARIAN CANCER RECURRENT
     Route: 042
     Dates: start: 20091119, end: 20091119
  15. DOXORUBICIN HCL [Suspect]
     Route: 042
     Dates: start: 20091022, end: 20091022
  16. GRAN [Concomitant]
     Dosage: 75MCG/0.3ML
     Route: 065
     Dates: start: 20091106, end: 20091107
  17. FUNGUARD [Concomitant]
     Dosage: 75MCG/0.3ML
     Route: 042
     Dates: start: 20100306, end: 20100310

REACTIONS (2)
  - PNEUMOCYSTIS JIROVECI PNEUMONIA [None]
  - ACUTE RESPIRATORY DISTRESS SYNDROME [None]
